FAERS Safety Report 8591392-0 (Version None)
Quarter: 2012Q3

REPORT INFORMATION
  Report Type: 
  Country: None (occurrence: None)
  Receive Date: 20120803
  Receipt Date: 20120803
  Transmission Date: 20120928
  Serious: Yes (Other)
  Sender: FDA-Public Use
  Company Number: None

PATIENT
  Sex: Female

DRUGS (4)
  1. LOTHARTIN [Concomitant]
  2. ADVIL [Concomitant]
  3. ACTONEL [Suspect]
     Indication: BONE LOSS
     Dosage: 150MG ONCE A MONTH PO  ONCE
     Route: 048
  4. INSULIN [Concomitant]

REACTIONS (7)
  - ARTHRALGIA [None]
  - PAIN IN EXTREMITY [None]
  - FATIGUE [None]
  - CHROMATURIA [None]
  - PAIN IN JAW [None]
  - ASTHENIA [None]
  - BACK PAIN [None]
